FAERS Safety Report 7038296-2 (Version None)
Quarter: 2010Q4

REPORT INFORMATION
  Report Type: 
  Country: None (occurrence: None)
  Receive Date: 20101011
  Receipt Date: 20091201
  Transmission Date: 20110411
  Serious: Yes (Death)
  Sender: FDA-Public Use
  Company Number: US-PFIZER INC-2009275484

PATIENT
  Age: 36 Year
  Sex: Female
  Weight: 74.376 kg

DRUGS (8)
  1. NEURONTIN [Suspect]
     Indication: NEUROPATHY PERIPHERAL
     Dosage: 100 MG, 3X/DAY
     Route: 048
     Dates: start: 20090528, end: 20090530
  2. TOPAMAX [Suspect]
     Dosage: 400 MG, 1X/DAY
     Dates: start: 20050221, end: 20090530
  3. AMBIEN [Concomitant]
     Dosage: UNK
     Dates: start: 20060508, end: 20090501
  4. FLEXERIL [Concomitant]
     Dosage: UNK
     Dates: start: 20060901, end: 20090501
  5. PROZAC [Concomitant]
     Dosage: UNK
     Dates: start: 20080222, end: 20090501
  6. KLONOPIN [Concomitant]
     Dosage: UNK
     Dates: start: 20060501, end: 20090501
  7. ADVIL [Concomitant]
     Dosage: UNK
  8. DULCOLAX [Concomitant]
     Dosage: UNK

REACTIONS (1)
  - COMPLETED SUICIDE [None]
